FAERS Safety Report 7737451-3 (Version None)
Quarter: 2011Q3

REPORT INFORMATION
  Report Type: 
  Country: None (occurrence: None)
  Receive Date: 20110908
  Receipt Date: 20110902
  Transmission Date: 20111222
  Serious: Yes (Hospitalization)
  Sender: FDA-Public Use
  Company Number: CA-GLAXOSMITHKLINE-A0902615A

PATIENT
  Sex: Female

DRUGS (2)
  1. XELODA [Suspect]
     Indication: PRODUCT USED FOR UNKNOWN INDICATION
     Route: 065
     Dates: end: 20110721
  2. TYKERB [Suspect]
     Indication: BREAST CANCER METASTATIC
     Dosage: 1250MG PER DAY
     Route: 048
     Dates: start: 20100830, end: 20110721

REACTIONS (6)
  - DEHYDRATION [None]
  - GAIT DISTURBANCE [None]
  - METASTASES TO CENTRAL NERVOUS SYSTEM [None]
  - VOMITING [None]
  - DIZZINESS [None]
  - CONFUSIONAL STATE [None]
